FAERS Safety Report 9126628 (Version 1)
Quarter: 2013Q1

REPORT INFORMATION
  Report Type: Spontaneous
  Country: FR (occurrence: FR)
  Receive Date: 20130117
  Receipt Date: 20130117
  Transmission Date: 20140127
  Serious: Yes (Hospitalization)
  Sender: FDA-Public Use
  Company Number: FR-ROCHE-1179443

PATIENT
  Sex: Female

DRUGS (2)
  1. HERCEPTIN [Suspect]
     Indication: BREAST CANCER
     Dosage: 1 INJECTION EVERY 3 WEEKS
     Route: 042
     Dates: start: 201207
  2. SERESTA [Concomitant]
     Route: 065

REACTIONS (2)
  - Raynaud^s phenomenon [Recovering/Resolving]
  - Peripheral ischaemia [Recovering/Resolving]
